FAERS Safety Report 18405896 (Version 2)
Quarter: 2020Q4

REPORT INFORMATION
  Report Type: Spontaneous
  Country: GB (occurrence: GB)
  Receive Date: 20201020
  Receipt Date: 20201105
  Transmission Date: 20210114
  Serious: Yes (Other)
  Sender: FDA-Public Use
  Company Number: GB-PFIZER INC-2020397999

PATIENT
  Age: 21 Year
  Sex: Male

DRUGS (4)
  1. CISPLATIN. [Suspect]
     Active Substance: CISPLATIN
     Indication: TESTICULAR GERM CELL TUMOUR MIXED
     Dosage: 70 MG/M2 ( ON DAY 8)
     Route: 042
  2. GUADECITABINE [Suspect]
     Active Substance: GUADECITABINE
     Indication: TESTICULAR GERM CELL TUMOUR MIXED
     Dosage: 20 MG/M2, CYCLIC (1 TO 5 DAYS)
     Route: 058
  3. FILGRASTIM [Concomitant]
     Active Substance: FILGRASTIM
     Indication: PROPHYLAXIS
     Dosage: UNK UNK, CYCLIC (21 DAYS CYCLE)
  4. GEMCITABINE HYDROCHLORIDE. [Suspect]
     Active Substance: GEMCITABINE HYDROCHLORIDE
     Indication: TESTICULAR GERM CELL TUMOUR MIXED
     Dosage: 1000 MG/M2, CYCLIC (ON DAY 5 + DAY 15 FOR 6 CYCLES.)
     Route: 042

REACTIONS (4)
  - Neoplasm progression [Unknown]
  - Thrombocytopenia [Unknown]
  - Febrile neutropenia [Unknown]
  - Neutropenia [Unknown]
